FAERS Safety Report 24218242 (Version 2)
Quarter: 2024Q3

REPORT INFORMATION
  Report Type: Spontaneous
  Country: TW (occurrence: TW)
  Receive Date: 20240816
  Receipt Date: 20240829
  Transmission Date: 20241017
  Serious: Yes (Other)
  Sender: ALEXION PHARMACEUTICALS
  Company Number: TW-ALXN-202408ASI000815TW

PATIENT
  Age: 41 Year
  Sex: Male

DRUGS (2)
  1. SOLIRIS [Suspect]
     Active Substance: ECULIZUMAB
     Indication: Paroxysmal nocturnal haemoglobinuria
     Dosage: UNK
     Route: 065
     Dates: start: 20141129
  2. PREDNISOLONE [Suspect]
     Active Substance: PREDNISOLONE
     Indication: Paroxysmal nocturnal haemoglobinuria
     Dosage: UNK
     Route: 065

REACTIONS (13)
  - Hepatitis B [Unknown]
  - Hepatic cirrhosis [Unknown]
  - Haemolysis [Recovering/Resolving]
  - Platelet count decreased [Unknown]
  - Anaemia [Unknown]
  - Blood lactate dehydrogenase increased [Unknown]
  - Splenomegaly [Unknown]
  - Haemoglobin decreased [Unknown]
  - Neutrophil count increased [Unknown]
  - Lymphocyte count decreased [Unknown]
  - Basophil count increased [Unknown]
  - Reticulocyte count increased [Unknown]
  - Blood bilirubin increased [Unknown]
